FAERS Safety Report 4354468-X (Version None)
Quarter: 2004Q2

REPORT INFORMATION
  Report Type: 
  Country: None (occurrence: None)
  Receive Date: 20040503
  Receipt Date: 20040427
  Transmission Date: 20050107
  Serious: Yes (Hospitalization)
  Sender: FDA-Public Use
  Company Number: 2004JP000283

PATIENT
  Age: 29 Year
  Sex: Female
  Weight: 43.2 kg

DRUGS (4)
  1. PROGRAF [Suspect]
     Indication: RENAL TRANSPLANT
     Dosage: 3.00 MG  : 2.00 MG  : 3.00 MG
     Dates: end: 20030324
  2. PROGRAF [Suspect]
     Indication: RENAL TRANSPLANT
     Dosage: 3.00 MG  : 2.00 MG  : 3.00 MG
     Dates: start: 20030325, end: 20030402
  3. PROGRAF [Suspect]
     Indication: RENAL TRANSPLANT
     Dosage: 3.00 MG  : 2.00 MG  : 3.00 MG
     Dates: start: 20030403
  4. TOFISOPAM(TOFISOPAM) [Suspect]
     Dosage: 150.00 MG, UID/QD
     Dates: end: 20030324

REACTIONS (4)
  - ADENOVIRAL HAEMORRHAGIC CYSTITIS [None]
  - DRUG INTERACTION [None]
  - DRUG LEVEL INCREASED [None]
  - IMMUNOSUPPRESSION [None]
